FAERS Safety Report 5212955-6 (Version None)
Quarter: 2007Q1

REPORT INFORMATION
  Report Type: 
  Country: None (occurrence: None)
  Receive Date: 20070119
  Receipt Date: 20070110
  Transmission Date: 20070707
  Serious: Yes (Other)
  Sender: FDA-Public Use
  Company Number: PHEH2006US10096

PATIENT
  Age: 54 Year
  Sex: Female

DRUGS (5)
  1. ZOMETA [Suspect]
     Indication: METASTASES TO BONE
     Dosage: 4 MG EVERY 4 WEEKS
     Route: 042
     Dates: start: 20050907, end: 20060724
  2. AVASTIN [Concomitant]
     Indication: CHEMOTHERAPY
     Dosage: 600 MG EVERY 2 WEEKS
     Dates: start: 20060106
  3. FASLODEX [Concomitant]
     Indication: CHEMOTHERAPY
     Dosage: 250 MG EVERY 4 WEEKS
     Dates: start: 20060515, end: 20060710
  4. DECADRON [Concomitant]
     Indication: ANTIEMETIC SUPPORTIVE CARE
     Dosage: 10 MG WITH CHEMOTHERAPY
     Dates: start: 20060531
  5. ALOXI [Concomitant]
     Indication: ANTIEMETIC SUPPORTIVE CARE
     Dosage: 0.25 MG WITH CHEMOTHERAPY
     Dates: start: 20060531

REACTIONS (4)
  - ANAEMIA [None]
  - GINGIVAL INFECTION [None]
  - GINGIVAL RECESSION [None]
  - OSTEONECROSIS [None]
